FAERS Safety Report 6252108-6 (Version None)
Quarter: 2009Q2

REPORT INFORMATION
  Report Type: 
  Country: None (occurrence: None)
  Receive Date: 20090630
  Receipt Date: 20071122
  Transmission Date: 20091009
  Serious: Yes (Death)
  Sender: FDA-Public Use
  Company Number: US-ROCHE-638979

PATIENT
  Sex: Male

DRUGS (4)
  1. ENFUVIRTIDE [Suspect]
     Indication: HIV INFECTION
     Route: 065
     Dates: start: 20071113, end: 20071122
  2. LEXIVA [Concomitant]
     Dosage: DOSE: 1 TABLET.
     Dates: start: 20071030, end: 20071122
  3. TRUVADA [Concomitant]
     Dosage: DOSE: 1 TABLET, FREQUENCY: DAILY (QD)
     Dates: start: 20071030, end: 20071122
  4. ZITHROMAX [Concomitant]
     Dosage: DOSE: 1 TABLET, FREQUENCY: DAILY (QD)
     Dates: start: 20071113, end: 20071122

REACTIONS (1)
  - ACQUIRED IMMUNODEFICIENCY SYNDROME [None]
